FAERS Safety Report 9117072 (Version 1)
Quarter: 2013Q1

REPORT INFORMATION
  Report Type: Spontaneous
  Country: NL (occurrence: NL)
  Receive Date: 20130225
  Receipt Date: 20130225
  Transmission Date: 20140127
  Serious: Yes (Disabling)
  Sender: FDA-Public Use
  Company Number: NL-AMGEN-NLDSP2013010793

PATIENT
  Age: 45 Year
  Sex: Male
  Weight: 65 kg

DRUGS (8)
  1. PEGFILGRASTIM [Suspect]
     Indication: MALIGNANT LYMPHOID NEOPLASM
     Dosage: 6 MG, UNK
     Route: 058
     Dates: start: 20100722
  2. RITUXIMAB [Suspect]
     Indication: MALIGNANT LYMPHOID NEOPLASM
     Dosage: 680 MG, Q2WK
     Route: 042
     Dates: start: 20100721
  3. CYCLOPHOSPHAMIDE [Suspect]
     Indication: MALIGNANT LYMPHOID NEOPLASM
     Dosage: 1350 MG, Q2WK
     Route: 042
     Dates: start: 20100721
  4. DOXORUBICIN [Suspect]
     Indication: MALIGNANT LYMPHOID NEOPLASM
     Dosage: 90 MG, Q2WK
     Route: 042
     Dates: start: 20100721
  5. VINCRISTINE [Suspect]
     Indication: MALIGNANT LYMPHOID NEOPLASM
     Dosage: 2 MG, Q2WK
     Route: 042
     Dates: start: 20100721
  6. PREDNISONE [Suspect]
     Indication: MALIGNANT LYMPHOID NEOPLASM
     Dosage: 100 MG, DAYS 1-5 OF TWO WEEK CYCLE
     Route: 048
     Dates: start: 20100721
  7. CO-TRIMOXAZOLE                     /00086101/ [Concomitant]
     Indication: PROPHYLAXIS
     Dosage: 400 MG, 1 IN 1 D
     Route: 048
     Dates: start: 20100721, end: 201008
  8. ZELITREX [Concomitant]
     Indication: PROPHYLAXIS
     Dosage: 500 MG, 2 IN 1 D
     Route: 048
     Dates: start: 20100721, end: 201008

REACTIONS (1)
  - Soft tissue disorder [Recovered/Resolved]
